FAERS Safety Report 6121346-5 (Version None)
Quarter: 2009Q1

REPORT INFORMATION
  Report Type: 
  Country: None (occurrence: None)
  Receive Date: 20090313
  Receipt Date: 20090313
  Transmission Date: 20090719
  Serious: Yes (Other)
  Sender: FDA-Public Use
  Company Number: None

PATIENT
  Age: 65 Year
  Sex: Female
  Weight: 58.9676 kg

DRUGS (1)
  1. LISINOPRIL [Suspect]
     Indication: COUGH
     Dosage: TWO TABLETS ONCE DAILY PO
     Route: 048
     Dates: start: 20090114, end: 20090222

REACTIONS (2)
  - COUGH [None]
  - DYSPNOEA [None]
